FAERS Safety Report 9226534 (Version 1)
Quarter: 2013Q2

REPORT INFORMATION
  Report Type: Spontaneous
  Country: CN (occurrence: CN)
  Receive Date: 20130412
  Receipt Date: 20130412
  Transmission Date: 20140414
  Serious: Yes (Life-Threatening)
  Sender: FDA-Public Use
  Company Number: CN-GE HEALTHCARE MEDICAL DIAGNOSTICS-OMPQ-NO-1304S-0437

PATIENT
  Age: 5 Month
  Sex: Male

DRUGS (2)
  1. OMNIPAQUE [Suspect]
     Indication: HEART DISEASE CONGENITAL
     Route: 042
     Dates: start: 20130404, end: 20130404
  2. OMNIPAQUE [Suspect]
     Indication: DIAGNOSTIC PROCEDURE

REACTIONS (2)
  - Cardiac arrest [Recovering/Resolving]
  - Respiratory arrest [Recovering/Resolving]
